FAERS Safety Report 5501230-8 (Version None)
Quarter: 2007Q4

REPORT INFORMATION
  Report Type: 
  Country: None (occurrence: None)
  Receive Date: 20071029
  Receipt Date: 20071017
  Transmission Date: 20080405
  Serious: Yes (Other)
  Sender: FDA-Public Use
  Company Number: GB-PFIZER INC-2007088423

PATIENT
  Age: 33 Year
  Sex: Male

DRUGS (3)
  1. CHAMPIX [Suspect]
     Indication: SMOKING CESSATION THERAPY
     Route: 048
  2. VENTOLIN [Concomitant]
     Indication: ASTHMA
     Route: 055
  3. SERETIDE [Concomitant]
     Indication: ASTHMA
     Route: 055

REACTIONS (2)
  - ANGER [None]
  - IRRITABILITY [None]
